FAERS Safety Report 12793893 (Version 1)
Quarter: 2016Q3

REPORT INFORMATION
  Report Type: Spontaneous
  Country: US (occurrence: US)
  Receive Date: 20160929
  Receipt Date: 20160929
  Transmission Date: 20161109
  Serious: No
  Sender: FDA-Public Use
  Company Number: US-JAZZ-2016-US-011882

PATIENT
  Sex: Female

DRUGS (21)
  1. COLLAGEN RENEW WITH VITAMIN C [Concomitant]
  2. MIRAPEX [Concomitant]
     Active Substance: PRAMIPEXOLE DIHYDROCHLORIDE
  3. ROBAXIN [Concomitant]
     Active Substance: METHOCARBAMOL
  4. VITAMIN K2 [Concomitant]
     Active Substance: MENAQUINONE 6
  5. ZYRTEC [Concomitant]
     Active Substance: CETIRIZINE HYDROCHLORIDE
  6. XYREM [Suspect]
     Active Substance: SODIUM OXYBATE
     Dosage: 4.5 G, BID
     Route: 048
     Dates: start: 201604, end: 2016
  7. CLONAZEPAM. [Concomitant]
     Active Substance: CLONAZEPAM
  8. GARCINIA GAMBOGIA [Concomitant]
  9. FISH OIL [Concomitant]
     Active Substance: FISH OIL
  10. RASPBERRY KETONES MEGA [Concomitant]
  11. LIDOCAINE. [Concomitant]
     Active Substance: LIDOCAINE
  12. MULTIVITAMINS [Concomitant]
     Active Substance: VITAMINS
  13. MAGNESIUM OXIDE. [Concomitant]
     Active Substance: MAGNESIUM OXIDE
  14. REFRESH CLASSIC LUCRICANT EYE DROPS [Concomitant]
  15. VITAMIN C [Concomitant]
     Active Substance: ASCORBIC ACID
  16. XYREM [Suspect]
     Active Substance: SODIUM OXYBATE
     Indication: NARCOLEPSY
     Dosage: 2.25 G, BID
     Route: 048
     Dates: start: 201604, end: 201604
  17. CITRACAL + D [Concomitant]
     Active Substance: CALCIUM CITRATE\VITAMIN D
  18. KEPPRA [Concomitant]
     Active Substance: LEVETIRACETAM
  19. SINGULAIR [Concomitant]
     Active Substance: MONTELUKAST SODIUM
  20. XYREM [Suspect]
     Active Substance: SODIUM OXYBATE
     Dosage: DOSE ADJUSTMENTS
     Route: 048
     Dates: start: 201604, end: 201604
  21. BUTRANS [Concomitant]
     Active Substance: BUPRENORPHINE

REACTIONS (12)
  - Coccydynia [Unknown]
  - Respiratory rate decreased [Unknown]
  - Hyperhidrosis [Unknown]
  - Nausea [Unknown]
  - Dizziness [Unknown]
  - Panic attack [Unknown]
  - Feeling abnormal [Unknown]
  - Feeling hot [Unknown]
  - Dry mouth [Unknown]
  - Ill-defined disorder [Unknown]
  - Fear [Unknown]
  - Headache [Unknown]

NARRATIVE: CASE EVENT DATE: 2016
